FAERS Safety Report 17270249 (Version 4)
Quarter: 2020Q1

REPORT INFORMATION
  Report Type: Report from Study
  Country: FR (occurrence: FR)
  Receive Date: 20200114
  Receipt Date: 20200206
  Transmission Date: 20200409
  Serious: Yes (Hospitalization)
  Sender: FDA-Public Use
  Company Number: FR-EISAI MEDICAL RESEARCH-EC-2019-066690

PATIENT
  Age: 77 Year
  Sex: Male
  Weight: 54 kg

DRUGS (21)
  1. PEMBROLIZUMAB. [Suspect]
     Active Substance: PEMBROLIZUMAB
     Indication: HEPATOCELLULAR CARCINOMA
     Dates: start: 20190704, end: 20190828
  2. COAPROVEL [Concomitant]
     Active Substance: HYDROCHLOROTHIAZIDE\IRBESARTAN
     Dates: start: 20191003, end: 20191114
  3. HYDROCORTISONE ACEPONATE [Concomitant]
     Active Substance: HYDROCORTISONE ACEPONATE
     Dates: start: 20191016
  4. ALTHIAZIDE [Concomitant]
     Active Substance: ALTHIAZIDE
     Dates: start: 20191016, end: 20191115
  5. ZITHROMAX [Concomitant]
     Active Substance: AZITHROMYCIN DIHYDRATE
     Dates: start: 20191009, end: 20191013
  6. SPIRONOLACTONE. [Concomitant]
     Active Substance: SPIRONOLACTONE
     Dates: start: 20191016, end: 20191115
  7. CODEXIAL GLYCEROLE [Concomitant]
     Dates: start: 20191016
  8. PEMBROLIZUMAB. [Suspect]
     Active Substance: PEMBROLIZUMAB
     Dates: start: 20191029
  9. LERCAN [Concomitant]
     Active Substance: LERCANIDIPINE
     Dates: start: 20190726
  10. FLUCONAZOLE. [Concomitant]
     Active Substance: FLUCONAZOLE
     Dates: start: 20191004, end: 20191026
  11. PEMBROLIZUMAB. [Suspect]
     Active Substance: PEMBROLIZUMAB
     Dates: start: 20190917, end: 20190917
  12. LEVOTHYROX [Concomitant]
     Active Substance: LEVOTHYROXINE
     Dates: start: 20190823
  13. PANTOPRAZOLE [Concomitant]
     Active Substance: PANTOPRAZOLE
     Dates: start: 20191014
  14. LENVATINIB [Suspect]
     Active Substance: LENVATINIB
     Indication: HEPATOCELLULAR CARCINOMA
     Dosage: STARTING DOSE: 12 MG, FLUCTUATED DOSAGE
     Route: 048
     Dates: start: 20190704, end: 20191008
  15. CARDENSIEL [Concomitant]
     Active Substance: BISOPROLOL FUMARATE
     Dates: start: 20190814
  16. HYPERIUM [Concomitant]
     Active Substance: RILMENIDINE PHOSPHATE
     Dates: start: 20190823, end: 20191016
  17. ALDACTONE [Concomitant]
     Active Substance: SPIRONOLACTONE
     Dates: start: 20190823, end: 20191015
  18. EUPRESSYL [Concomitant]
     Active Substance: URAPIDIL
     Dates: start: 20190903, end: 20191016
  19. LENVATINIB [Suspect]
     Active Substance: LENVATINIB
     Route: 048
     Dates: start: 20191022
  20. KALEORID [Concomitant]
     Active Substance: POTASSIUM CHLORIDE
     Dates: start: 20191008, end: 20191120
  21. SMECTA [Concomitant]
     Active Substance: MONTMORILLONITE
     Dates: start: 20190923, end: 20191117

REACTIONS (1)
  - Diarrhoea [Recovered/Resolved]

NARRATIVE: CASE EVENT DATE: 20191023
